FAERS Safety Report 7141742-7 (Version None)
Quarter: 2010Q4

REPORT INFORMATION
  Report Type: 
  Country: None (occurrence: None)
  Receive Date: 20101207
  Receipt Date: 20101130
  Transmission Date: 20110411
  Serious: Yes (Hospitalization)
  Sender: FDA-Public Use
  Company Number: NL-BAXTER-2010BH029090

PATIENT
  Age: 51 Year
  Sex: Female

DRUGS (2)
  1. GAMMAGARD LIQUID [Suspect]
     Indication: MOTOR NEURONE DISEASE
     Dosage: DOSERING ONBEKEND I.V.
     Route: 042
     Dates: start: 20100913, end: 20100918
  2. GAMMAGARD LIQUID [Suspect]
     Indication: OFF LABEL USE
     Dosage: DOSERING ONBEKEND I.V.
     Route: 042
     Dates: start: 20100913, end: 20100918

REACTIONS (5)
  - HYPOTENSION [None]
  - NAUSEA [None]
  - PSYCHOTIC DISORDER [None]
  - PYREXIA [None]
  - RETCHING [None]
